FAERS Safety Report 7689079-1 (Version None)
Quarter: 2011Q3

REPORT INFORMATION
  Report Type: 
  Country: None (occurrence: None)
  Receive Date: 20110817
  Receipt Date: 20110808
  Transmission Date: 20111222
  Serious: Yes (Hospitalization, Other)
  Sender: FDA-Public Use
  Company Number: US-MERCK-1106USA03841

PATIENT
  Age: 61 Year
  Sex: Female

DRUGS (21)
  1. METOCLOPRAMIDE [Concomitant]
     Route: 065
  2. LYRICA [Concomitant]
     Route: 065
  3. METHYLPHENIDATE [Concomitant]
     Route: 065
  4. [THERAPY UNSPECIFIED] [Concomitant]
     Route: 065
  5. VYTORIN [Concomitant]
     Route: 048
  6. MAXALT [Concomitant]
     Route: 048
  7. ALBUTEROL [Concomitant]
     Route: 065
  8. NEXIUM [Concomitant]
     Route: 065
  9. ZOFRAN [Concomitant]
     Route: 065
  10. FOSAMAX [Suspect]
     Indication: OSTEOPOROSIS
     Route: 048
     Dates: start: 20000101, end: 20100101
  11. BONIVA [Suspect]
     Indication: OSTEOPOROSIS
     Route: 048
     Dates: start: 20000101, end: 20100101
  12. PREMARIN [Concomitant]
     Route: 065
     Dates: start: 19790101, end: 20110701
  13. LEVOTHYROXINE SODIUM [Concomitant]
     Route: 065
  14. RHINOCORT [Concomitant]
     Route: 065
  15. LIDODERM [Concomitant]
     Route: 065
  16. CALCIUM (UNSPECIFIED) [Concomitant]
     Route: 065
  17. ESTRADIOL [Concomitant]
     Route: 065
  18. VITAMINS (UNSPECIFIED) [Concomitant]
     Route: 065
  19. ASPIRIN [Concomitant]
     Route: 065
     Dates: end: 20080601
  20. ASCORBIC ACID [Concomitant]
     Route: 065
  21. OMEGA-3 MARINE TRIGLYCERIDES [Concomitant]
     Route: 065

REACTIONS (39)
  - ASTHMA [None]
  - ATRIAL FIBRILLATION [None]
  - NASAL SEPTUM DEVIATION [None]
  - INFECTION [None]
  - ANGIOPATHY [None]
  - TEMPOROMANDIBULAR JOINT SYNDROME [None]
  - ANXIETY [None]
  - DYSGEUSIA [None]
  - POST PROCEDURAL HAEMORRHAGE [None]
  - DENTAL CARIES [None]
  - PHOTODERMATOSIS [None]
  - FIBROMYALGIA [None]
  - BACK PAIN [None]
  - CONCUSSION [None]
  - CONSTIPATION [None]
  - DIZZINESS [None]
  - HYPOTHYROIDISM [None]
  - OEDEMA PERIPHERAL [None]
  - INFLUENZA LIKE ILLNESS [None]
  - SCAR [None]
  - POST-TRAUMATIC STRESS DISORDER [None]
  - NIGHT SWEATS [None]
  - ABDOMINAL DISTENSION [None]
  - DEPRESSION [None]
  - SPINAL OSTEOARTHRITIS [None]
  - FEMUR FRACTURE [None]
  - ECCHYMOSIS [None]
  - GASTROOESOPHAGEAL REFLUX DISEASE [None]
  - WEIGHT DECREASED [None]
  - PNEUMONIA [None]
  - OSTEONECROSIS OF JAW [None]
  - FALL [None]
  - PANIC ATTACK [None]
  - DRUG INEFFECTIVE [None]
  - PURPURA SENILE [None]
  - COLONIC POLYP [None]
  - MIGRAINE [None]
  - SLEEP APNOEA SYNDROME [None]
  - DIARRHOEA [None]
